FAERS Safety Report 8983074 (Version 1)
Quarter: 2012Q4

REPORT INFORMATION
  Report Type: 
  Country: GB (occurrence: GB)
  Receive Date: 20121224
  Receipt Date: 20121224
  Transmission Date: 20130627
  Serious: Yes (Disabling)
  Sender: FDA-Public Use
  Company Number: GB-009507513-1212GBR009511

PATIENT
  Age: 29 Year
  Sex: Female
  Weight: 60 kg

DRUGS (2)
  1. ELOCON [Suspect]
     Indication: DERMATITIS ATOPIC
     Dosage: UNK
     Route: 061
     Dates: start: 19830801, end: 20121127
  2. EUMOVATE [Suspect]
     Indication: DERMATITIS ATOPIC
     Dosage: UNK
     Route: 061
     Dates: start: 19830801, end: 20121127

REACTIONS (11)
  - Dependence [Not Recovered/Not Resolved]
  - Skin burning sensation [Unknown]
  - Eczema [Not Recovered/Not Resolved]
  - Eczema weeping [Not Recovered/Not Resolved]
  - Skin exfoliation [Not Recovered/Not Resolved]
  - Pruritus [Unknown]
  - Erythema [Not Recovered/Not Resolved]
  - Steroid withdrawal syndrome [Not Recovered/Not Resolved]
  - Eye discharge [Unknown]
  - Eye swelling [Unknown]
  - Pruritus [None]
